FAERS Safety Report 5609602-8 (Version None)
Quarter: 2008Q1

REPORT INFORMATION
  Report Type: 
  Country: None (occurrence: None)
  Receive Date: 20080131
  Receipt Date: 20080124
  Transmission Date: 20080703
  Serious: Yes (Other)
  Sender: FDA-Public Use
  Company Number: A0705182A

PATIENT
  Age: 31 Year
  Sex: Male

DRUGS (3)
  1. PAXIL CR [Suspect]
     Dosage: 12.5MG PER DAY
     Route: 048
     Dates: start: 20080122
  2. PROTONIX [Concomitant]
  3. LOTREL [Concomitant]

REACTIONS (4)
  - ASTHENIA [None]
  - DEPRESSED LEVEL OF CONSCIOUSNESS [None]
  - DIZZINESS [None]
  - HEADACHE [None]
